FAERS Safety Report 7202829-3 (Version None)
Quarter: 2010Q4

REPORT INFORMATION
  Report Type: 
  Country: None (occurrence: None)
  Receive Date: 20101229
  Receipt Date: 20101220
  Transmission Date: 20110411
  Serious: Yes (Other)
  Sender: FDA-Public Use
  Company Number: CA-ELI_LILLY_AND_COMPANY-CA201011007650

PATIENT
  Sex: Female
  Weight: 70.748 kg

DRUGS (5)
  1. EVISTA [Suspect]
     Indication: OSTEOPENIA
     Dosage: 60 MG, UNK
     Route: 048
  2. VITAMIN D [Concomitant]
     Dosage: 1 D/F, UNK
  3. CALCIUM [Concomitant]
     Dosage: 1 D/F, UNK
  4. MULTI-VITAMIN [Concomitant]
     Dosage: 1 D/F, UNK
  5. ACTONEL [Concomitant]
     Dosage: 1 D/F, UNK

REACTIONS (1)
  - BREAST CANCER [None]
